FAERS Safety Report 13335578 (Version 7)
Quarter: 2019Q2

REPORT INFORMATION
  Report Type: Spontaneous
  Country: JP (occurrence: JP)
  Receive Date: 20170314
  Receipt Date: 20190620
  Transmission Date: 20190711
  Serious: Yes (Hospitalization, Other)
  Sender: FDA-Public Use
  Company Number: JP-BRISTOL-MYERS SQUIBB COMPANY-BMS-2017-012735

PATIENT
  Age: 59 Year
  Sex: Male
  Weight: 71.5 kg

DRUGS (1)
  1. OPDIVO [Suspect]
     Active Substance: NIVOLUMAB
     Indication: NON-SMALL CELL LUNG CANCER RECURRENT
     Dosage: 200 MG, Q2WK
     Route: 041
     Dates: start: 20161222, end: 20180627

REACTIONS (6)
  - Lymphopenia [Unknown]
  - Colitis ulcerative [Recovering/Resolving]
  - Radiation pneumonitis [Recovering/Resolving]
  - Pulmonary tuberculosis [Unknown]
  - Myocarditis [Unknown]
  - Cytomegalovirus infection [Unknown]

NARRATIVE: CASE EVENT DATE: 201701
